FAERS Safety Report 26177869 (Version 1)
Quarter: 2025Q4

REPORT INFORMATION
  Report Type: Spontaneous
  Country: GB (occurrence: GB)
  Receive Date: 20251219
  Receipt Date: 20251219
  Transmission Date: 20260118
  Serious: Yes (Other)
  Sender: CELLTRION
  Company Number: GB-ABBVIE-6559593

PATIENT

DRUGS (2)
  1. ADALIMUMAB [Suspect]
     Active Substance: ADALIMUMAB
     Indication: Crohn^s disease
     Dosage: EVERY 1 WEEK
     Route: 058
     Dates: start: 201908
  2. ADALIMUMAB [Suspect]
     Active Substance: ADALIMUMAB
     Dosage: EVERY 1 WEEK
     Route: 058
     Dates: end: 2025

REACTIONS (4)
  - Proctectomy [Unknown]
  - Sepsis [Unknown]
  - Gastrointestinal stoma complication [Unknown]
  - Drug ineffective [Unknown]

NARRATIVE: CASE EVENT DATE: 20220101
